FAERS Safety Report 8347622-3 (Version None)
Quarter: 2012Q2

REPORT INFORMATION
  Report Type: 
  Country: None (occurrence: None)
  Receive Date: 20120509
  Receipt Date: 20120425
  Transmission Date: 20120825
  Serious: Yes (Other)
  Sender: FDA-Public Use
  Company Number: CZ-ELI_LILLY_AND_COMPANY-CZ201204004937

PATIENT
  Sex: Male

DRUGS (2)
  1. STRATTERA [Suspect]
     Indication: ATTENTION DEFICIT/HYPERACTIVITY DISORDER
     Dosage: 10 MG, EACH EVENING
     Route: 048
     Dates: start: 20111013, end: 20120215
  2. ATARAX [Concomitant]
     Indication: AFFECT LABILITY
     Dosage: 6.25 MG, EACH EVENING
     Dates: start: 20091124

REACTIONS (5)
  - SLEEP DISORDER [None]
  - AFFECT LABILITY [None]
  - IRRITABILITY [None]
  - TEARFULNESS [None]
  - DEPRESSED MOOD [None]
